FAERS Safety Report 20044474 (Version 2)
Quarter: 2021Q4

REPORT INFORMATION
  Report Type: Report from Study
  Country: AR (occurrence: None)
  Receive Date: 20211108
  Receipt Date: 20211230
  Transmission Date: 20220303
  Serious: Yes (Other)
  Sender: FDA-Public Use
  Company Number: AR-Merck Healthcare KGaA-9275764

PATIENT
  Age: 40 Year
  Sex: Female

DRUGS (4)
  1. MAVENCLAD [Suspect]
     Active Substance: CLADRIBINE
     Indication: Relapsing-remitting multiple sclerosis
     Dosage: YEAR ONE MONTH ONE THERAPY
     Route: 048
     Dates: start: 20190314, end: 20190318
  2. MAVENCLAD [Suspect]
     Active Substance: CLADRIBINE
     Dosage: YEAR ONE MONTH TWO THERAPY
     Route: 048
     Dates: start: 20190411, end: 20190415
  3. MAVENCLAD [Suspect]
     Active Substance: CLADRIBINE
     Dosage: YEAR TWO MONTH ONE THERAPY
     Route: 048
     Dates: start: 20200314, end: 20200318
  4. MAVENCLAD [Suspect]
     Active Substance: CLADRIBINE
     Dosage: YEAR TWO MONTH TWO THERAPY
     Route: 048
     Dates: start: 20200411, end: 20200415

REACTIONS (1)
  - Cutaneous vasculitis [Not Recovered/Not Resolved]

NARRATIVE: CASE EVENT DATE: 20210101
